FAERS Safety Report 8274104-X (Version None)
Quarter: 2012Q2

REPORT INFORMATION
  Report Type: 
  Country: None (occurrence: None)
  Receive Date: 20120411
  Receipt Date: 20120328
  Transmission Date: 20120825
  Serious: Yes (Hospitalization)
  Sender: FDA-Public Use
  Company Number: IT-PFIZER INC-2012088572

PATIENT
  Age: 1 Year
  Sex: Female
  Weight: 11 kg

DRUGS (2)
  1. AZITHROMYCIN [Suspect]
     Indication: UPPER RESPIRATORY TRACT INFLAMMATION
     Dosage: 20 ML, SINGLE DOSE
     Route: 048
     Dates: start: 20120323, end: 20120323
  2. AZITHROMYCIN [Suspect]
     Dosage: UNK

REACTIONS (3)
  - RASH [None]
  - ACCIDENTAL OVERDOSE [None]
  - DIARRHOEA [None]
